FAERS Safety Report 8737392 (Version 2)
Quarter: 2012Q4

REPORT INFORMATION
  Report Type: Report from Study
  Country: JP (occurrence: JP)
  Receive Date: 20120822
  Receipt Date: 20121128
  Transmission Date: 20130627
  Serious: Yes (Other)
  Sender: FDA-Public Use
  Company Number: JP-VERTEX PHARMACEUTICAL INC.-2012-019680

PATIENT
  Age: 56 Year
  Sex: Male

DRUGS (12)
  1. DIANAMIX [Concomitant]
     Route: 048
  2. ALLOPURINOL [Concomitant]
     Dosage: 100 mg, qd
     Route: 048
     Dates: start: 20120510
  3. OHNES ST [Concomitant]
     Route: 048
  4. VX-950 (TELAPREVIR) [Suspect]
     Indication: CHRONIC HEPATITIS C
     Dosage: 1500 mg, qd
     Route: 048
     Dates: start: 20120508
  5. RIBAVIRIN [Suspect]
     Indication: CHRONIC HEPATITIS C
     Dosage: 800 mg, qd
     Route: 048
     Dates: start: 20120508, end: 20120528
  6. RIBAVIRIN [Suspect]
     Dosage: 600 mg, qd
     Route: 048
     Dates: start: 20120529, end: 20120702
  7. RIBAVIRIN [Suspect]
     Dosage: 400 UNK, UNK
     Route: 048
     Dates: start: 20120703
  8. PEGINTERFERON ALFA-2B [Suspect]
     Indication: CHRONIC HEPATITIS C
     Dosage: 1.5 ?g/kg, qw
     Route: 058
     Dates: start: 20120508, end: 20120521
  9. PEGINTERFERON ALFA-2B [Suspect]
     Dosage: 0.75 ?g/kg, UNK
     Route: 058
     Dates: start: 20120522
  10. COLEPOLI-R [Concomitant]
     Route: 048
  11. DOMPERIDONE [Concomitant]
     Route: 048
  12. SORASILOL [Concomitant]
     Route: 048

REACTIONS (2)
  - Hypoglycaemia [Recovered/Resolved]
  - Haemoglobin decreased [None]
